FAERS Safety Report 9028343 (Version 1)
Quarter: 2013Q1

REPORT INFORMATION
  Report Type: Spontaneous
  Country: US (occurrence: US)
  Receive Date: 20130124
  Receipt Date: 20130124
  Transmission Date: 20140127
  Serious: No
  Sender: FDA-Public Use
  Company Number: US-BAUSCH-BL-2012-001674

PATIENT
  Sex: Female

DRUGS (4)
  1. ALAWAY [Suspect]
     Indication: EYE PRURITUS
     Dosage: 1 DROP IN EACH EYE; ONCE DAILY
     Route: 047
     Dates: start: 201209, end: 201209
  2. ALAWAY [Suspect]
     Indication: EYE ALLERGY
  3. FEXOFENADINE HYDROCHLORIDE [Concomitant]
  4. NAPROXEN SODIUM [Concomitant]

REACTIONS (1)
  - Instillation site pain [Recovered/Resolved]
